FAERS Safety Report 12165425 (Version 6)
Quarter: 2017Q2

REPORT INFORMATION
  Report Type: Report from Study
  Country: KR (occurrence: KR)
  Receive Date: 20160309
  Receipt Date: 20170406
  Transmission Date: 20170830
  Serious: Yes (Hospitalization)
  Sender: FDA-Public Use
  Company Number: KR-GILEAD-2014-0116764

PATIENT
  Age: 43 Year
  Sex: Female
  Weight: 65.8 kg

DRUGS (44)
  1. HEPAMERZ                           /01390204/ [Concomitant]
     Dosage: 1 DF, UNK
     Route: 065
     Dates: start: 20140404, end: 20140421
  2. POTASSIUM CHLORIDE. [Concomitant]
     Active Substance: POTASSIUM CHLORIDE
     Dosage: 20 ML, UNK
     Dates: start: 20140408, end: 20140409
  3. DEXA-S [Concomitant]
     Dosage: 1 DF, UNK
     Dates: start: 20150205, end: 20150212
  4. ZANTAC [Concomitant]
     Active Substance: RANITIDINE HYDROCHLORIDE
     Dosage: 150 MG, UNK
     Route: 048
     Dates: start: 20150206, end: 20150213
  5. ATIVAN [Concomitant]
     Active Substance: LORAZEPAM
     Dosage: 0.5 MG, UNK
     Route: 048
     Dates: start: 20140523, end: 20140529
  6. GODEX [Concomitant]
     Dosage: UNK
     Dates: start: 20140104, end: 20140519
  7. HEPAMERZ                           /01390204/ [Concomitant]
     Dosage: UNK
     Route: 051
     Dates: start: 20140331, end: 20140512
  8. BACTROBAN [Concomitant]
     Active Substance: MUPIROCIN\MUPIROCIN CALCIUM
     Dosage: 10 G, UNK
     Dates: start: 20040418, end: 20040428
  9. ZOFRAN [Concomitant]
     Active Substance: ONDANSETRON HYDROCHLORIDE
     Dosage: 8 UNK, UNK
     Route: 048
     Dates: start: 20140523, end: 20140523
  10. DICHLOZID [Concomitant]
     Dosage: 25 MG, UNK
     Route: 048
     Dates: start: 20150223, end: 20150225
  11. TENOFOVIR DISOPROXIL FUMARATE. [Suspect]
     Active Substance: TENOFOVIR DISOPROXIL FUMARATE
     Indication: HEPATITIS B
     Dosage: 300 MG, QD
     Route: 048
     Dates: start: 20140405, end: 20140520
  12. CALTEO [Concomitant]
     Dosage: 40 MG, UNK
     Route: 048
     Dates: start: 20140625, end: 20150215
  13. VITAMINS WITH MINERALS [Concomitant]
     Active Substance: MINERALS\VITAMINS
     Dosage: UNK
     Route: 048
     Dates: start: 20140625, end: 20150216
  14. PHENIRAMIN [Concomitant]
     Dosage: 1 UNK, UNK
     Route: 065
     Dates: start: 20150205, end: 20150212
  15. ZANTAC [Concomitant]
     Active Substance: RANITIDINE HYDROCHLORIDE
     Dosage: 150 MG, UNK
     Route: 048
     Dates: start: 20140521, end: 20140523
  16. MACPERAN [Concomitant]
     Active Substance: METOCLOPRAMIDE HYDROCHLORIDE
     Dosage: 5 MG, UNK
     Route: 048
     Dates: start: 20150205, end: 20150223
  17. URSA [Concomitant]
     Dosage: UNK
     Dates: start: 20131121
  18. ADRIAMYCIN [Concomitant]
     Active Substance: DOXORUBICIN HYDROCHLORIDE
     Dosage: 1 DF, UNK
     Route: 051
     Dates: start: 20140522, end: 20140522
  19. TYLENOL ER [Concomitant]
     Active Substance: ACETAMINOPHEN
     Dosage: 650 MG, UNK
     Route: 048
     Dates: start: 20140524, end: 20140603
  20. TAXOL [Concomitant]
     Active Substance: PACLITAXEL
     Dosage: 1 DF, UNK
     Route: 051
     Dates: start: 20140205, end: 20140512
  21. TENOFOVIR DISOPROXIL FUMARATE. [Suspect]
     Active Substance: TENOFOVIR DISOPROXIL FUMARATE
     Dosage: 300 MG, QD
     Route: 048
     Dates: start: 20140524
  22. GRASIN [Concomitant]
     Dosage: UNK
     Route: 051
     Dates: start: 20140525, end: 20140601
  23. ZOMETA [Concomitant]
     Active Substance: ZOLEDRONIC ACID
     Dosage: 1 DF, UNK
     Route: 051
     Dates: start: 20141121, end: 20150213
  24. URANTAC [Concomitant]
     Dosage: 1 DF, UNK
     Route: 065
     Dates: start: 20150205, end: 20150212
  25. FRAVASOL [Concomitant]
     Dosage: 1 DF, UNK
     Route: 065
     Dates: start: 20140521, end: 20140603
  26. PENNEL                             /07159001/ [Concomitant]
     Dosage: UNK
     Dates: start: 20140423
  27. COUGH SYRUP [Concomitant]
     Active Substance: DEXTROMETHORPHAN HYDROBROMIDE\GUAIFENESIN
     Dosage: 500 ML, UNK
     Dates: start: 20140412, end: 20140415
  28. TANTUM                             /00052302/ [Concomitant]
     Dosage: 100 ML, UNK
     Route: 048
     Dates: start: 20140524, end: 20140603
  29. NOLVADEX-D [Concomitant]
     Dosage: 20 MG, UNK
     Dates: start: 20140625, end: 20150215
  30. DEXAMETHASONE. [Concomitant]
     Active Substance: DEXAMETHASONE
     Dosage: 0.5 UNK, UNK
     Route: 048
     Dates: start: 20150206, end: 20150213
  31. MACPERAN [Concomitant]
     Active Substance: METOCLOPRAMIDE HYDROCHLORIDE
     Dosage: 5 MG, UNK
     Route: 048
     Dates: start: 20140523, end: 20140603
  32. LASIX [Concomitant]
     Active Substance: FUROSEMIDE
     Dosage: 40 MG, UNK
     Route: 048
     Dates: start: 20150223, end: 20150225
  33. HEPAMERZ                           /01390204/ [Concomitant]
     Dosage: 1 DF, UNK
     Route: 065
     Dates: start: 20140423, end: 20140430
  34. PROAMIN [Concomitant]
     Dosage: 500 ML, UNK
     Dates: start: 20140405, end: 20140407
  35. BEECOM HEXA [Concomitant]
     Dosage: 2 ML, UNK
     Route: 065
     Dates: start: 20140524, end: 20140603
  36. PHENIRAMIN [Concomitant]
     Dosage: 1 DF, UNK
     Route: 065
     Dates: start: 20140522, end: 20140601
  37. AZEPTIN                            /00884002/ [Concomitant]
     Dosage: UNK
     Dates: start: 20131209, end: 20140421
  38. MEGEROL [Concomitant]
     Dosage: UNK
     Dates: start: 20140404, end: 20140504
  39. TAXOTERE [Concomitant]
     Active Substance: DOCETAXEL
     Dosage: 80 MG, UNK
     Dates: start: 20140522, end: 20140522
  40. ZOFRAN [Concomitant]
     Active Substance: ONDANSETRON HYDROCHLORIDE
     Dosage: 8 MG, UNK
     Route: 051
     Dates: start: 20140522, end: 20140522
  41. MAXIPIME [Concomitant]
     Active Substance: CEFEPIME HYDROCHLORIDE
     Dosage: 1 G, UNK
     Route: 065
     Dates: start: 20140524, end: 20140603
  42. DEXAMETHASONE. [Concomitant]
     Active Substance: DEXAMETHASONE
     Dosage: 0.5 MG, UNK
     Route: 048
     Dates: start: 20140521, end: 20140523
  43. FRAVASOL [Concomitant]
     Dosage: 1 DF, UNK
     Route: 065
     Dates: start: 20150203, end: 20150222
  44. ATIVAN [Concomitant]
     Active Substance: LORAZEPAM
     Dosage: 0.5 UNK, UNK
     Route: 048
     Dates: start: 20150205, end: 20150223

REACTIONS (11)
  - Myalgia [Recovered/Resolved]
  - Periodontitis [Unknown]
  - Neutrophil count increased [Recovered/Resolved]
  - Dental caries [Unknown]
  - Vomiting [Recovered/Resolved]
  - Leukopenia [Unknown]
  - Febrile neutropenia [Recovered/Resolved]
  - Leukopenia [Recovered/Resolved]
  - Alanine aminotransferase increased [Recovered/Resolved]
  - Nausea [Recovered/Resolved]
  - Aspartate aminotransferase increased [Recovered/Resolved]

NARRATIVE: CASE EVENT DATE: 20140430
